FAERS Safety Report 13611452 (Version 2)
Quarter: 2017Q4

REPORT INFORMATION
  Report Type: Spontaneous
  Country: US (occurrence: US)
  Receive Date: 20170605
  Receipt Date: 20171030
  Transmission Date: 20180320
  Serious: Yes (Death)
  Sender: FDA-Public Use
  Company Number: US-PFIZER INC-2017243424

PATIENT
  Age: 64 Year
  Sex: Female
  Weight: 37.15 kg

DRUGS (3)
  1. FEMARA [Concomitant]
     Active Substance: LETROZOLE
     Dosage: 2.5 MG, 1X/DAY
  2. IBRANCE [Suspect]
     Active Substance: PALBOCICLIB
     Indication: BREAST CANCER METASTATIC
     Dosage: 125 MG, 1X/DAY
     Route: 048
     Dates: start: 20170517
  3. IBRANCE [Suspect]
     Active Substance: PALBOCICLIB
     Dosage: 100 MG, CYCLIC(ONCE A DAY, 21 DAYS ON AND 7 DAYS OFF)
     Route: 048
     Dates: end: 20170819

REACTIONS (2)
  - White blood cell count decreased [Unknown]
  - Neoplasm progression [Fatal]

NARRATIVE: CASE EVENT DATE: 20170530
